FAERS Safety Report 16974661 (Version 2)
Quarter: 2019Q4

REPORT INFORMATION
  Report Type: Spontaneous
  Country: FR (occurrence: FR)
  Receive Date: 20191030
  Receipt Date: 20191125
  Transmission Date: 20200122
  Serious: Yes (Death, Other)
  Sender: FDA-Public Use
  Company Number: FR-PFIZER INC-2019466571

PATIENT
  Age: 81 Year
  Sex: Male
  Weight: 93 kg

DRUGS (12)
  1. ATORVASTATIN CALCIUM. [Suspect]
     Active Substance: ATORVASTATIN CALCIUM
     Indication: DYSLIPIDAEMIA
     Dosage: 20 MG, DAILY
     Route: 048
     Dates: end: 20190722
  2. ADENURIC [Suspect]
     Active Substance: FEBUXOSTAT
     Dosage: 80 MG, ALTERNATE DAY
     Route: 048
     Dates: end: 20190722
  3. PREVISCAN (FLUINDIONE) [Suspect]
     Active Substance: FLUINDIONE
     Indication: MYOCARDIAL ISCHAEMIA
     Dosage: UNK, 1/4 ALTERNATELY 1/2 A DAY
     Route: 048
     Dates: end: 20190722
  4. NICORANDIL [Suspect]
     Active Substance: NICORANDIL
     Dosage: 20 MG, DAILY
     Route: 048
     Dates: end: 20190722
  5. BISOPROLOL HEMIFUMARATE [Suspect]
     Active Substance: BISOPROLOL FUMARATE
     Indication: HYPERTENSION
     Dosage: 1.25 MG, DAILY
     Route: 048
     Dates: end: 20190722
  6. FUROSEMIDE. [Suspect]
     Active Substance: FUROSEMIDE
     Indication: HYPERTENSION
     Dosage: 80 MG, DAILY
     Route: 048
     Dates: end: 20190722
  7. AMLODIPINE BESILATE [Suspect]
     Active Substance: AMLODIPINE BESYLATE
     Indication: HYPERTENSION
     Dosage: 5 MG, DAILY
     Route: 048
     Dates: end: 20190722
  8. TAMSULOSIN [Suspect]
     Active Substance: TAMSULOSIN
     Dosage: 1 DF, DAILY
     Route: 048
     Dates: end: 20190722
  9. LANTUS [Suspect]
     Active Substance: INSULIN GLARGINE
     Indication: INSULIN-REQUIRING TYPE 2 DIABETES MELLITUS
     Dosage: 18 IU, DAILY
     Route: 058
     Dates: end: 20190722
  10. HUMALOG [Suspect]
     Active Substance: INSULIN LISPRO
     Indication: INSULIN-REQUIRING TYPE 2 DIABETES MELLITUS
     Dosage: UNK
     Route: 058
     Dates: end: 20190722
  11. EPINITRIL [Suspect]
     Active Substance: NITROGLYCERIN
     Dosage: 1 DF, DAILY (STRENGTH: 15 MG/24 HOURS)
     Route: 062
     Dates: end: 20190722
  12. PERINDOPRIL [Suspect]
     Active Substance: PERINDOPRIL
     Indication: HYPERTENSION
     Dosage: 5 MG, 1X/DAY
     Route: 048
     Dates: end: 20190722

REACTIONS (6)
  - Hypotension [Fatal]
  - Head injury [Fatal]
  - Cerebral haemorrhage [Fatal]
  - Intraventricular haemorrhage [Fatal]
  - Coma [Fatal]
  - Meningorrhagia [Fatal]

NARRATIVE: CASE EVENT DATE: 20190722
